FAERS Safety Report 8836855 (Version 1)
Quarter: 2012Q4

REPORT INFORMATION
  Report Type: 
  Country: DE (occurrence: DE)
  Receive Date: 20121012
  Receipt Date: 20121012
  Transmission Date: 20130627
  Serious: Yes (Other)
  Sender: FDA-Public Use
  Company Number: DE-UCBSA-068487

PATIENT
  Age: 24 Month
  Sex: Female
  Weight: 12 kg

DRUGS (1)
  1. KEPPRA [Suspect]
     Dosage: 3 ML, STRENGTH:100 MG/ML, TOTAL AMOUNT:300 MG
     Route: 048
     Dates: start: 20121007

REACTIONS (1)
  - Accidental exposure to product [Unknown]
